FAERS Safety Report 7364335-5 (Version None)
Quarter: 2011Q1

REPORT INFORMATION
  Report Type: 
  Country: None (occurrence: None)
  Receive Date: 20110321
  Receipt Date: 20110226
  Transmission Date: 20110831
  Serious: No
  Sender: FDA-Public Use
  Company Number: US-B.I. PHARMACEUTICALS,INC./RIDGEFIELD-2011-BP-07100BP

PATIENT
  Sex: Male

DRUGS (3)
  1. PRADAXA [Suspect]
     Indication: ATRIAL FIBRILLATION
     Dosage: 300 MG
     Route: 048
     Dates: start: 20110201
  2. PRAVASTATIN [Concomitant]
     Indication: CARDIAC DISORDER
     Dosage: 40 MG
  3. ATENOLOL [Concomitant]
     Indication: HYPERTENSION
     Dosage: 50 MG

REACTIONS (2)
  - BURNING SENSATION [None]
  - DYSPEPSIA [None]
